FAERS Safety Report 19607141 (Version 1)
Quarter: 2021Q3

REPORT INFORMATION
  Report Type: Spontaneous
  Country: AT (occurrence: AT)
  Receive Date: 20210726
  Receipt Date: 20210726
  Transmission Date: 20211014
  Serious: Yes (Other)
  Sender: FDA-Public Use
  Company Number: AT-SHILPA MEDICARE LIMITED-SML-AT-2021-00906

PATIENT
  Sex: Male

DRUGS (1)
  1. DOCETAXEL, UNKNOWN [Suspect]
     Active Substance: DOCETAXEL
     Indication: HORMONE-REFRACTORY PROSTATE CANCER
     Dosage: 5 ML DOCETAXEL INFUSION PREPARATION
     Route: 065

REACTIONS (3)
  - Circulatory collapse [Recovered/Resolved]
  - Nausea [Recovered/Resolved]
  - Vomiting [Recovered/Resolved]
